FAERS Safety Report 9451552 (Version 1)
Quarter: 2013Q3

REPORT INFORMATION
  Report Type: Spontaneous
  Country: IL (occurrence: IL)
  Receive Date: 20130811
  Receipt Date: 20130811
  Transmission Date: 20140515
  Serious: Yes (Hospitalization)
  Sender: FDA-Public Use
  Company Number: IL-MYLANLABS-2013S1017071

PATIENT
  Age: 18 Month
  Sex: Male

DRUGS (1)
  1. SALBUTAMOL [Suspect]
     Indication: ACCIDENTAL OVERDOSE
     Dosage: 2MG/5ML
     Route: 048

REACTIONS (7)
  - Agitation [Unknown]
  - Hypokalaemia [Recovered/Resolved]
  - Hyperglycaemia [Recovered/Resolved]
  - Tachycardia [Recovered/Resolved]
  - Leukocytosis [Unknown]
  - Accidental overdose [Recovered/Resolved]
  - Toxicity to various agents [Recovered/Resolved]
